FAERS Safety Report 5265084-X (Version None)
Quarter: 2007Q1

REPORT INFORMATION
  Report Type: 
  Country: None (occurrence: None)
  Receive Date: 20061122
  Receipt Date: 20051216
  Transmission Date: 20070707
  Serious: Yes (Life-Threatening, Hospitalization)
  Sender: FDA-Public Use
  Company Number: 2006MP001154

PATIENT
  Age: 58 Year
  Sex: Male

DRUGS (1)
  1. GLIADEL [Suspect]
     Indication: DRUG USE FOR UNKNOWN INDICATION
     Dosage: ICER
     Dates: start: 20051213

REACTIONS (2)
  - CONVULSION [None]
  - WOUND INFECTION [None]
